FAERS Safety Report 7912860-8 (Version None)
Quarter: 2011Q4

REPORT INFORMATION
  Report Type: 
  Country: None (occurrence: None)
  Receive Date: 20111114
  Receipt Date: 20111103
  Transmission Date: 20120403
  Serious: Yes (Hospitalization, Disabling)
  Sender: FDA-Public Use
  Company Number: DE-GLAXOSMITHKLINE-D0073082A

PATIENT
  Sex: Male
  Weight: 80 kg

DRUGS (9)
  1. OMEPRAZOLE [Concomitant]
     Route: 065
  2. SIMVASTATIN [Concomitant]
     Route: 065
  3. TORSEMIDE [Concomitant]
     Route: 065
  4. DIGIMERCK [Concomitant]
     Route: 065
  5. ASPIRIN [Concomitant]
     Route: 065
  6. PROMACTA [Suspect]
     Indication: IDIOPATHIC THROMBOCYTOPENIC PURPURA
     Dosage: 50MG PER DAY
     Route: 065
  7. PREDNISONE [Concomitant]
     Route: 065
  8. ANTIHYPERTENSIVES [Concomitant]
     Route: 065
  9. METOPROLOL SUCCINATE [Concomitant]
     Route: 065

REACTIONS (3)
  - HAEMATOMA [None]
  - ISCHAEMIA [None]
  - PERIPHERAL EMBOLISM [None]
